FAERS Safety Report 23598932 (Version 2)
Quarter: 2024Q1

REPORT INFORMATION
  Report Type: Report from Study
  Country: FR (occurrence: FR)
  Receive Date: 20240306
  Receipt Date: 20240328
  Transmission Date: 20240410
  Serious: Yes (Hospitalization, Other)
  Sender: FDA-Public Use
  Company Number: FR-GLAXOSMITHKLINE-FR2024GSK026792

PATIENT

DRUGS (8)
  1. DOSTARLIMAB [Suspect]
     Active Substance: DOSTARLIMAB
     Indication: Endometrial cancer
     Dosage: 500 MG, Q3W
     Route: 042
     Dates: start: 20231121, end: 20240111
  2. DOSTARLIMAB [Suspect]
     Active Substance: DOSTARLIMAB
     Indication: Cervix neoplasm
  3. DOSTARLIMAB [Suspect]
     Active Substance: DOSTARLIMAB
     Indication: Neoplasm malignant
  4. DOSTARLIMAB [Suspect]
     Active Substance: DOSTARLIMAB
     Indication: Recurrent cancer
  5. TAXOL [Suspect]
     Active Substance: PACLITAXEL
     Indication: Endometrial cancer recurrent
  6. TAXOL [Suspect]
     Active Substance: PACLITAXEL
     Indication: Cervix neoplasm
  7. TAXOL [Suspect]
     Active Substance: PACLITAXEL
     Indication: Recurrent cancer
  8. TAXOL [Suspect]
     Active Substance: PACLITAXEL
     Indication: Neoplasm malignant

REACTIONS (3)
  - Diarrhoea [Unknown]
  - Dehydration [Unknown]
  - Acute kidney injury [Unknown]
